FAERS Safety Report 8042720-6 (Version None)
Quarter: 2011Q4

REPORT INFORMATION
  Report Type: 
  Country: None (occurrence: None)
  Receive Date: 20111209
  Receipt Date: 20111103
  Transmission Date: 20120403
  Serious: No
  Sender: FDA-Public Use
  Company Number: TH-2011-00476

PATIENT
  Age: 45 Year
  Sex: Female

DRUGS (1)
  1. EGRIFTA [Suspect]
     Indication: LIPODYSTROPHY ACQUIRED
     Dosage: 1 IN 1 D, SUBCUTANEOUS
     Route: 058
     Dates: start: 20111101

REACTIONS (7)
  - POLLAKIURIA [None]
  - URINE COLOUR ABNORMAL [None]
  - PAIN [None]
  - BURNING SENSATION [None]
  - INSOMNIA [None]
  - CHILLS [None]
  - OEDEMA PERIPHERAL [None]
